FAERS Safety Report 18907082 (Version 1)
Quarter: 2021Q1

REPORT INFORMATION
  Report Type: Spontaneous
  Country: US (occurrence: US)
  Receive Date: 20210217
  Receipt Date: 20210217
  Transmission Date: 20210420
  Serious: No
  Sender: FDA-Public Use
  Company Number: US-009507513-2102USA005702

PATIENT
  Age: 68 Year
  Sex: Male

DRUGS (5)
  1. PACLITAXEL ALBUMIN [Suspect]
     Active Substance: PACLITAXEL
     Indication: METASTATIC SQUAMOUS CELL CARCINOMA
  2. DOCETAXEL. [Suspect]
     Active Substance: DOCETAXEL
     Indication: METASTATIC SQUAMOUS CELL CARCINOMA
  3. KEYTRUDA [Suspect]
     Active Substance: PEMBROLIZUMAB
     Indication: METASTATIC SQUAMOUS CELL CARCINOMA
  4. GEMCITABINE. [Suspect]
     Active Substance: GEMCITABINE
     Indication: METASTATIC SQUAMOUS CELL CARCINOMA
  5. CARBOPLATIN. [Suspect]
     Active Substance: CARBOPLATIN
     Indication: METASTATIC SQUAMOUS CELL CARCINOMA

REACTIONS (1)
  - Product use in unapproved indication [Unknown]
